FAERS Safety Report 6088045-X (Version None)
Quarter: 2009Q1

REPORT INFORMATION
  Report Type: 
  Country: None (occurrence: None)
  Receive Date: 20090218
  Receipt Date: 20090213
  Transmission Date: 20090719
  Serious: Yes (Other)
  Sender: FDA-Public Use
  Company Number: SP02254

PATIENT
  Age: 54 Year
  Sex: Male

DRUGS (1)
  1. MOVIPREP [Suspect]
     Indication: COLONOSCOPY
     Dosage: (1 LIT) ,ORAL
     Route: 048
     Dates: start: 20081215

REACTIONS (1)
  - HYPERKALAEMIA [None]
